FAERS Safety Report 7353616-7 (Version None)
Quarter: 2011Q1

REPORT INFORMATION
  Report Type: 
  Country: None (occurrence: None)
  Receive Date: 20110315
  Receipt Date: 20110307
  Transmission Date: 20110831
  Serious: Yes (Life-Threatening, Hospitalization)
  Sender: FDA-Public Use
  Company Number: DE-CELGENEUS-062-C5013-10112982

PATIENT
  Age: 74 Year
  Sex: Male

DRUGS (18)
  1. CC-5013 [Suspect]
     Dosage: 25 MILLIGRAM
     Route: 048
     Dates: start: 20101029, end: 20101118
  2. PANTOPRAZOLE [Concomitant]
     Indication: PROPHYLAXIS
     Dosage: 40 MILLIGRAM
     Route: 048
     Dates: start: 20100806, end: 20101125
  3. METOPROLOL SUCCINATE [Concomitant]
     Indication: HYPERTENSION
     Dosage: 46.5 MILLIGRAM
     Route: 051
     Dates: start: 20101101
  4. AMARYL [Concomitant]
     Indication: TYPE 2 DIABETES MELLITUS
     Dosage: 1 MILLIGRAM
     Route: 048
     Dates: start: 20101209, end: 20101210
  5. PANTOPRAZOLE [Concomitant]
     Dosage: 40 MILLIGRAM
     Route: 051
     Dates: start: 20101101, end: 20101205
  6. CC-5013 [Suspect]
     Indication: MULTIPLE MYELOMA
     Dosage: 25 MILLIGRAM
     Route: 048
     Dates: start: 20100806
  7. DEXAMETHASONE [Suspect]
     Indication: MULTIPLE MYELOMA
     Dosage: 40 MILLIGRAM
     Route: 065
     Dates: start: 20100806
  8. PAMIDRONATE DISODIUM [Concomitant]
     Indication: OSTEOLYSIS
     Route: 051
     Dates: start: 20110211
  9. DEXAMETHASONE [Suspect]
     Dosage: 40 MILLIGRAM
     Route: 065
     Dates: start: 20101029
  10. ACETYLSALICYLIC ACID [Concomitant]
     Dosage: 100 MILLIGRAM
     Route: 048
     Dates: start: 20101217
  11. PANTOPRAZOLE [Concomitant]
     Dosage: 40 MILLIGRAM
     Route: 048
     Dates: start: 20101206
  12. TAMSULOSIN [Concomitant]
     Indication: BENIGN PROSTATIC HYPERPLASIA
     Dosage: .4 MILLIGRAM
     Route: 048
     Dates: start: 20100901
  13. PAMIDRONATE DISODIUM [Concomitant]
     Indication: MULTIPLE MYELOMA
     Route: 051
     Dates: start: 20100806, end: 20100901
  14. AMARYL [Concomitant]
     Dosage: 2 MILLIGRAM
     Route: 048
     Dates: start: 20101211
  15. ACETYLSALICYLIC ACID [Concomitant]
     Indication: THROMBOSIS PROPHYLAXIS
     Dosage: 100 MILLIGRAM
     Route: 048
     Dates: start: 20100806, end: 20101125
  16. CC-5013 [Suspect]
     Dosage: 20 MILLIGRAM
     Route: 048
     Dates: start: 20101217
  17. NEUPOGEN [Concomitant]
     Indication: PROPHYLAXIS
     Route: 051
     Dates: start: 20101001, end: 20101125
  18. NEUPOGEN [Concomitant]
     Dosage: 30.4 MICROGRAM
     Route: 051
     Dates: start: 20101126, end: 20101126

REACTIONS (1)
  - EPIGLOTTITIS [None]
